FAERS Safety Report 5956334-2 (Version None)
Quarter: 2008Q4

REPORT INFORMATION
  Report Type: 
  Country: None (occurrence: None)
  Receive Date: 20081118
  Receipt Date: 20081111
  Transmission Date: 20090506
  Serious: Yes (Hospitalization)
  Sender: FDA-Public Use
  Company Number: PHHY2008BR27951

PATIENT
  Age: 73 Year
  Sex: Male
  Weight: 64.3 kg

DRUGS (12)
  1. SANDIMMUNE [Suspect]
     Indication: RENAL TRANSPLANT
     Dosage: 75 MG/DAY
     Dates: end: 20081110
  2. SANDIMMUNE [Suspect]
     Dosage: 100 MG, BID
     Dates: start: 20081110
  3. RAPAMYCIN [Concomitant]
     Dosage: 2 MG, QD
     Route: 065
  4. PREDNISONE TAB [Concomitant]
     Dosage: 5 MG, QD
     Route: 065
  5. CYMBALTA [Concomitant]
     Dosage: 60 MG, QD
     Route: 065
  6. LEXAPRO [Concomitant]
     Dosage: 10 MG, QD
     Route: 065
  7. DIAMICRON [Concomitant]
     Dosage: 30 MG, QD
     Route: 065
  8. SODIUM CHLORIDE [Concomitant]
     Dosage: 1000 ML, Q12H
     Route: 065
  9. AMBISOME [Concomitant]
     Dosage: 200MG DILUTED INTO GLUCOSATE SOLUTION 5% 250ML ONCE DAILY
     Route: 065
  10. CIPRO [Concomitant]
     Dosage: 200 MG, QD
     Route: 042
  11. TAZOFIN [Concomitant]
     Dosage: 2250 MG, TID
     Route: 065
  12. PANTOZOL [Concomitant]
     Dosage: 40 MG, QD
     Route: 065

REACTIONS (5)
  - DEVICE INTERACTION [None]
  - DIARRHOEA [None]
  - GASTROINTESTINAL TUBE INSERTION [None]
  - ILEOSTOMY [None]
  - IMMUNOSUPPRESSANT DRUG LEVEL DECREASED [None]
